FAERS Safety Report 25069382 (Version 1)
Quarter: 2025Q1

REPORT INFORMATION
  Report Type: Report from Study
  Country: FR (occurrence: FR)
  Receive Date: 20250312
  Receipt Date: 20250312
  Transmission Date: 20250409
  Serious: Yes (Hospitalization)
  Sender: ALNYLAM PHARMACEUTICALS
  Company Number: FR-ALNYLAM PHARMACEUTICALS, INC.-ALN-2025-001665

PATIENT

DRUGS (1)
  1. OXLUMO [Suspect]
     Active Substance: LUMASIRAN
     Indication: Product used for unknown indication
     Route: 065

REACTIONS (3)
  - Complication associated with device [Unknown]
  - Pain [Unknown]
  - Sleep disorder [Unknown]

NARRATIVE: CASE EVENT DATE: 20250101
